FAERS Safety Report 7578461-9 (Version None)
Quarter: 2011Q2

REPORT INFORMATION
  Report Type: 
  Country: None (occurrence: None)
  Receive Date: 20110628
  Receipt Date: 20110620
  Transmission Date: 20111010
  Serious: Yes (Hospitalization)
  Sender: FDA-Public Use
  Company Number: GB-TEVA-285456ISR

PATIENT
  Age: 53 Year
  Sex: Female
  Weight: 96 kg

DRUGS (4)
  1. CLOZAPINE [Suspect]
     Dosage: 250 MILLIGRAM;
     Route: 048
  2. LORAZEPAM [Suspect]
     Dosage: 1 MILLIGRAM;
     Route: 048
  3. VALPROIC ACID [Suspect]
     Dosage: 600 MILLIGRAM;
     Route: 048
  4. DIAZEPAM [Suspect]
     Route: 048

REACTIONS (3)
  - DYSPNOEA [None]
  - ANXIETY [None]
  - HYPERVENTILATION [None]
